FAERS Safety Report 5972601-0 (Version None)
Quarter: 2008Q4

REPORT INFORMATION
  Report Type: 
  Country: None (occurrence: None)
  Receive Date: 20081201
  Receipt Date: 20081128
  Transmission Date: 20090506
  Serious: Yes (Hospitalization)
  Sender: FDA-Public Use
  Company Number: DE-JNJFOC-20081106528

PATIENT
  Age: 69 Year
  Sex: Female

DRUGS (3)
  1. TARIVID [Suspect]
     Indication: MASTITIS
     Route: 048
  2. DOCETAXEL [Suspect]
     Indication: BREAST CANCER
     Dosage: CYCLICAL DOSING
     Route: 042
  3. GEMCITABINE HCL [Suspect]
     Indication: BREAST CANCER
     Dosage: CYCLICAL DOSING
     Route: 042

REACTIONS (4)
  - CONSTIPATION [None]
  - LEUKOPENIA [None]
  - NAUSEA [None]
  - STOMATITIS [None]
